FAERS Safety Report 16768170 (Version 1)
Quarter: 2019Q4

REPORT INFORMATION
  Report Type: Spontaneous
  Country: US (occurrence: US)
  Receive Date: 20190903
  Receipt Date: 20190903
  Transmission Date: 20200122
  Serious: No
  Sender: FDA-Public Use
  Company Number: None

PATIENT
  Age: 64 Year
  Sex: Female
  Weight: 62.1 kg

DRUGS (1)
  1. FLOVENT HFA 220 MCG INHALER GENERIC [Suspect]
     Active Substance: FLUTICASONE PROPIONATE
     Indication: ASTHMA
     Dosage: ?          QUANTITY:2 INHALATION(S);?
     Route: 055
     Dates: start: 20180930, end: 20190903

REACTIONS (2)
  - Skin atrophy [None]
  - Contusion [None]

NARRATIVE: CASE EVENT DATE: 20180601
